FAERS Safety Report 16964694 (Version 3)
Quarter: 2020Q1

REPORT INFORMATION
  Report Type: Spontaneous
  Country: US (occurrence: US)
  Receive Date: 20191028
  Receipt Date: 20200217
  Transmission Date: 20200409
  Serious: Yes (Hospitalization)
  Sender: FDA-Public Use
  Company Number: US-NOVOPROD-691788

PATIENT
  Age: 70 Year
  Sex: Female
  Weight: 106.59 kg

DRUGS (2)
  1. NOVOLOG [Suspect]
     Active Substance: INSULIN ASPART
     Indication: TYPE 2 DIABETES MELLITUS
     Dosage: 15 IU, TID
     Route: 058
     Dates: start: 201905
  2. LEVEMIR [Suspect]
     Active Substance: INSULIN DETEMIR
     Indication: TYPE 2 DIABETES MELLITUS
     Dosage: 35 IU, QD (IN AM)
     Route: 058
     Dates: start: 201905

REACTIONS (6)
  - Blood glucose increased [Recovered/Resolved]
  - Injection site pain [Recovered/Resolved]
  - Cystitis [Recovered/Resolved]
  - Injection site bruising [Recovered/Resolved]
  - Panic attack [Recovered/Resolved]
  - Injection site mass [Recovered/Resolved]

NARRATIVE: CASE EVENT DATE: 201905
